FAERS Safety Report 17212495 (Version 3)
Quarter: 2025Q2

REPORT INFORMATION
  Report Type: Report from Study
  Country: DE (occurrence: DE)
  Receive Date: 20191230
  Receipt Date: 20250519
  Transmission Date: 20250716
  Serious: Yes (Death, Hospitalization)
  Sender: TEVA
  Company Number: DE-EMA-DD-20191206-SAHU_K-160804

PATIENT
  Age: 68 Year
  Sex: Male
  Weight: 94 kg

DRUGS (6)
  1. DOCETAXEL [Suspect]
     Active Substance: DOCETAXEL
     Indication: Non-small cell lung cancer
     Dosage: DOSAGE TEXT: DAILY DOSE: 110 MG MILLIGRAM(S) EVERY DAY
     Route: 065
     Dates: start: 20161027, end: 20161224
  2. DOCETAXEL [Suspect]
     Active Substance: DOCETAXEL
     Indication: Non-small cell lung cancer
     Dosage: DOSAGE TEXT: DAILY DOSE: 150 MG MILLIGRAM(S) EVERY DAY
     Route: 065
  3. SULBACTAM [Concomitant]
     Active Substance: SULBACTAM
     Indication: Product used for unknown indication
     Dosage: DOSAGE TEXT: DAILY DOSE: 3 G GRAM(S) EVERY DAY
     Route: 042
     Dates: start: 20161018, end: 20161023
  4. AMPICILLIN [Concomitant]
     Active Substance: AMPICILLIN
     Indication: Product used for unknown indication
     Dosage: DOSAGE TEXT:  6 G GRAM(S) EVERY DAY
     Route: 042
     Dates: start: 20161018, end: 20161023
  5. NINTEDANIB [Suspect]
     Active Substance: NINTEDANIB
     Indication: Non-small cell lung cancer
     Dosage: DOSAGE TEXT: DAILY DOSE: 400 MG MILLIGRAM(S) EVERY DAY
     Route: 065
     Dates: start: 20161027, end: 20161224
  6. NINTEDANIB [Suspect]
     Active Substance: NINTEDANIB
     Indication: Non-small cell lung cancer
     Dosage: DOSAGE TEXT: 400 MG
     Route: 065

REACTIONS (3)
  - Malignant neoplasm progression [Fatal]
  - Leukopenia [Unknown]
  - Mucosal inflammation [Recovered/Resolved]

NARRATIVE: CASE EVENT DATE: 20161013
